FAERS Safety Report 23039728 (Version 1)
Quarter: 2023Q4

REPORT INFORMATION
  Report Type: Spontaneous
  Country: US (occurrence: US)
  Receive Date: 20231006
  Receipt Date: 20231006
  Transmission Date: 20240110
  Serious: Yes (Disabling)
  Sender: FDA-Public Use
  Company Number: US-SA-SAC20231003001327

PATIENT
  Age: 50 Year
  Sex: Female

DRUGS (2)
  1. DUPIXENT [Suspect]
     Active Substance: DUPILUMAB
     Indication: Eczema
     Dosage: 2 DF, 1X
     Route: 058
     Dates: start: 20230816, end: 20230816
  2. DUPIXENT [Suspect]
     Active Substance: DUPILUMAB
     Dosage: 1 DF QOW
     Route: 058
     Dates: start: 20230831

REACTIONS (6)
  - Loss of personal independence in daily activities [Unknown]
  - Initial insomnia [Unknown]
  - Affective disorder [Unknown]
  - Emotional disorder [Unknown]
  - Pruritus [Unknown]
  - Condition aggravated [Unknown]

NARRATIVE: CASE EVENT DATE: 20230901
